FAERS Safety Report 13118629 (Version 1)
Quarter: 2017Q1

REPORT INFORMATION
  Report Type: Other
  Country: US (occurrence: US)
  Receive Date: 20170116
  Receipt Date: 20170116
  Transmission Date: 20170428
  Serious: Yes (Death)
  Sender: FDA-Public Use
  Company Number: US-LEHIGH_VALLEY-USA-POI0580201700063

PATIENT
  Age: 43 Year
  Sex: Female

DRUGS (11)
  1. LEVOLET (LEVOTHYROXINE) [Suspect]
     Active Substance: LEVOTHYROXINE
     Dates: end: 2015
  2. METHYLPHENIDATE. [Suspect]
     Active Substance: METHYLPHENIDATE
     Dates: end: 2015
  3. MELATONIN [Suspect]
     Active Substance: MELATONIN
     Dates: end: 2015
  4. METHYLENEDIOXYMETHAMPHETAMINE [Suspect]
     Active Substance: METHYLENEDIOXYMETHAMPHETAMINE
     Dates: end: 2015
  5. LYSERGIC ACID DIETHYLAMIDE [Suspect]
     Active Substance: LYSERGIDE
     Dates: end: 2015
  6. CLONAZEPAM. [Suspect]
     Active Substance: CLONAZEPAM
     Dates: end: 2015
  7. ALCOHOL. [Suspect]
     Active Substance: ALCOHOL
     Dates: end: 2015
  8. BUPROPION. [Suspect]
     Active Substance: BUPROPION
     Dates: end: 2015
  9. POTASSIUM SPARING DIURETICS [Suspect]
     Active Substance: UNSPECIFIED INGREDIENT
     Dates: end: 2015
  10. CITALOPRAM [Suspect]
     Active Substance: CITALOPRAM HYDROBROMIDE
     Dates: end: 2015
  11. NALTREXONE [Suspect]
     Active Substance: NALTREXONE
     Dates: end: 2015

REACTIONS (1)
  - Completed suicide [Fatal]

NARRATIVE: CASE EVENT DATE: 2015
